FAERS Safety Report 6958042-8 (Version None)
Quarter: 2010Q3

REPORT INFORMATION
  Report Type: 
  Country: None (occurrence: None)
  Receive Date: 20100831
  Receipt Date: 20100823
  Transmission Date: 20110219
  Serious: Yes (Other)
  Sender: FDA-Public Use
  Company Number: US-SANOFI-AVENTIS-2010SA050772

PATIENT
  Sex: Female

DRUGS (3)
  1. LANTUS [Suspect]
     Indication: DIABETES MELLITUS
     Dosage: DOSE:20 UNIT(S)
     Route: 058
     Dates: start: 20070101
  2. OPTICLICK [Suspect]
     Dates: start: 20070101
  3. PREDNISONE [Suspect]
     Indication: SARCOIDOSIS
     Dosage: DRUG STOPPED IN MAR 2010 ;
     Dates: end: 20100301

REACTIONS (4)
  - MUSCLE SPASMS [None]
  - SARCOIDOSIS [None]
  - WEIGHT DECREASED [None]
  - WEIGHT INCREASED [None]
